FAERS Safety Report 6690147-1 (Version None)
Quarter: 2010Q2

REPORT INFORMATION
  Report Type: 
  Country: None (occurrence: None)
  Receive Date: 20100412
  Receipt Date: 20091230
  Transmission Date: 20101027
  Serious: No
  Sender: FDA-Public Use
  Company Number: 1000011045

PATIENT
  Age: 65 Year
  Sex: Male

DRUGS (6)
  1. BYSTOLIC [Suspect]
     Indication: HYPERTENSION
     Dosage: 5 MG (5 MG, 1 IN 1 D), ORAL
     Route: 048
     Dates: start: 20090101, end: 20090101
  2. BYSTOLIC [Suspect]
     Indication: HYPERTENSION
     Dosage: 2.5 MG (2.5 MG, 1 IN 1 D), ORAL
     Route: 048
     Dates: start: 20090101, end: 20091221
  3. BENICAR [Suspect]
     Indication: HYPERTENSION
     Dates: end: 20090101
  4. REMICADE [Suspect]
     Indication: ARTHRITIS
     Dates: end: 20090101
  5. SYNTHROID [Concomitant]
  6. VITAMINS [Concomitant]

REACTIONS (4)
  - BLOOD PRESSURE DECREASED [None]
  - DRUG INTERACTION [None]
  - TEMPERATURE INTOLERANCE [None]
  - TRI-IODOTHYRONINE DECREASED [None]
